FAERS Safety Report 11539658 (Version 1)
Quarter: 2015Q3

REPORT INFORMATION
  Report Type: Spontaneous
  Country: GB (occurrence: GB)
  Receive Date: 20150923
  Receipt Date: 20150923
  Transmission Date: 20151125
  Serious: Yes (Other)
  Sender: FDA-Public Use
  Company Number: GB-TEVA-593580ACC

PATIENT
  Age: 28 Year
  Sex: Female
  Weight: 65 kg

DRUGS (1)
  1. VENLAFAXINE [Suspect]
     Active Substance: VENLAFAXINE HYDROCHLORIDE
     Indication: DEPRESSION
     Route: 048
     Dates: start: 201502, end: 201502

REACTIONS (11)
  - Disturbance in attention [Recovering/Resolving]
  - Anxiety [Unknown]
  - Feeling abnormal [Recovering/Resolving]
  - Mental impairment [Recovered/Resolved]
  - Agitated depression [Recovering/Resolving]
  - Lethargy [Not Recovered/Not Resolved]
  - Emotional distress [Recovering/Resolving]
  - Hypoaesthesia [Recovered/Resolved]
  - Diarrhoea [Recovered/Resolved with Sequelae]
  - Dysarthria [Recovered/Resolved]
  - Nausea [Recovered/Resolved]
